FAERS Safety Report 7883360-9 (Version None)
Quarter: 2011Q4

REPORT INFORMATION
  Report Type: 
  Country: None (occurrence: None)
  Receive Date: 20111102
  Receipt Date: 20111102
  Transmission Date: 20120403
  Serious: Yes (Hospitalization)
  Sender: FDA-Public Use
  Company Number: None

PATIENT
  Age: 73 Year
  Sex: Male
  Weight: 86.5 kg

DRUGS (1)
  1. ACETAZOLAMIDE [Suspect]
     Indication: GLAUCOMA
     Dosage: 250MG
     Route: 048
     Dates: start: 20111019, end: 20111026

REACTIONS (2)
  - RENAL TUBULAR ACIDOSIS [None]
  - POLYURIA [None]
